FAERS Safety Report 7131636-5 (Version None)
Quarter: 2010Q4

REPORT INFORMATION
  Report Type: 
  Country: None (occurrence: None)
  Receive Date: 20101201
  Receipt Date: 20101120
  Transmission Date: 20110411
  Serious: Yes (Death, Other)
  Sender: FDA-Public Use
  Company Number: GB-GILEAD-2010-0033357

PATIENT
  Sex: Male

DRUGS (3)
  1. RANEXA [Suspect]
     Route: 048
  2. BUMETANIDE [Concomitant]
  3. METOLAZONE [Concomitant]

REACTIONS (2)
  - CARDIAC FAILURE [None]
  - RENAL IMPAIRMENT [None]
